FAERS Safety Report 20355133 (Version 1)
Quarter: 2022Q1

REPORT INFORMATION
  Report Type: Spontaneous
  Country: US (occurrence: US)
  Receive Date: 20220120
  Receipt Date: 20220120
  Transmission Date: 20220424
  Serious: Yes (Other)
  Sender: FDA-Public Use
  Company Number: US-GLAXOSMITHKLINE- US2022GSK008862

PATIENT
  Sex: Female

DRUGS (4)
  1. ZANTAC [Suspect]
     Active Substance: RANITIDINE HYDROCHLORIDE
     Indication: Dyspepsia
     Dosage: UNK, 2-3 TIMES PER DAY
     Route: 065
     Dates: start: 200006, end: 200603
  2. ZANTAC [Suspect]
     Active Substance: RANITIDINE HYDROCHLORIDE
     Indication: Dyspepsia
     Dosage: UNK, 2-3 TIMES PER DAY
     Route: 065
     Dates: start: 200006, end: 200603
  3. RANITIDINE [Suspect]
     Active Substance: RANITIDINE
     Indication: Dyspepsia
     Dosage: UNK, 2-3 TIMES PER DAY
     Route: 065
     Dates: start: 200003, end: 200006
  4. RANITIDINE [Suspect]
     Active Substance: RANITIDINE
     Indication: Dyspepsia
     Dosage: UNK, 2-3 TIMES PER DAY
     Route: 065
     Dates: start: 200003, end: 200006

REACTIONS (1)
  - Breast cancer [Unknown]
